FAERS Safety Report 21320806 (Version 1)
Quarter: 2022Q3

REPORT INFORMATION
  Report Type: Spontaneous
  Country: US (occurrence: US)
  Receive Date: 20220912
  Receipt Date: 20220912
  Transmission Date: 20221027
  Serious: No
  Sender: FDA-Public Use
  Company Number: US-MTPC-MTDA2022-0023441

PATIENT
  Sex: Male

DRUGS (1)
  1. RADICAVA [Suspect]
     Active Substance: EDARAVONE
     Indication: Amyotrophic lateral sclerosis
     Dosage: UNK
     Route: 042

REACTIONS (5)
  - Gait inability [Unknown]
  - Dysstasia [Unknown]
  - Muscular weakness [Unknown]
  - Disease progression [Unknown]
  - COVID-19 [Unknown]
